FAERS Safety Report 13269123 (Version 3)
Quarter: 2017Q1

REPORT INFORMATION
  Report Type: Report from Study
  Country: US (occurrence: US)
  Receive Date: 20170224
  Receipt Date: 20170316
  Transmission Date: 20170428
  Serious: No
  Sender: FDA-Public Use
  Company Number: PHEH2017US005581

PATIENT
  Age: 61 Year
  Sex: Female
  Weight: 57.6 kg

DRUGS (2)
  1. GILENYA [Suspect]
     Active Substance: FINGOLIMOD HYDROCHLORIDE
     Indication: RELAPSING-REMITTING MULTIPLE SCLEROSIS
     Dosage: 0.5 MG, QD
     Route: 048
  2. AUBAGIO [Concomitant]
     Active Substance: TERIFLUNOMIDE
     Indication: MULTIPLE SCLEROSIS
     Route: 065

REACTIONS (4)
  - Acne [Unknown]
  - Abdominal pain upper [Not Recovered/Not Resolved]
  - White blood cell count decreased [Unknown]
  - Oral herpes [Unknown]

NARRATIVE: CASE EVENT DATE: 20161213
